FAERS Safety Report 16430326 (Version 1)
Quarter: 2019Q2

REPORT INFORMATION
  Report Type: Spontaneous
  Country: US (occurrence: US)
  Receive Date: 20190614
  Receipt Date: 20190614
  Transmission Date: 20190711
  Serious: No
  Sender: FDA-Public Use
  Company Number: US-TEVA-2019-US-1056005

PATIENT

DRUGS (2)
  1. FEXOFENADINE 60 MG TABLET [Suspect]
     Active Substance: FEXOFENADINE HYDROCHLORIDE
     Indication: SEASONAL ALLERGY
     Dosage: 60 MG 425 TABLET
     Route: 048
     Dates: start: 201905
  2. ALLERGEN EXTRACTS [Concomitant]
     Active Substance: ALLERGENIC EXTRACTS
     Dosage: ONGOING

REACTIONS (1)
  - Therapeutic product effect variable [Unknown]

NARRATIVE: CASE EVENT DATE: 201905
